APPROVED DRUG PRODUCT: FLUOCINOLONE ACETONIDE
Active Ingredient: FLUOCINOLONE ACETONIDE
Strength: 0.01%
Dosage Form/Route: OIL/DROPS;OTIC
Application: A213264 | Product #001 | TE Code: AT
Applicant: TP ANDA HOLDINGS LLC
Approved: Feb 5, 2021 | RLD: No | RS: No | Type: RX